FAERS Safety Report 8053463 (Version 7)
Quarter: 2012Q4

REPORT INFORMATION
  Report Type: 
  Country: US (occurrence: US)
  Receive Date: 20110725
  Receipt Date: 20120920
  Transmission Date: 20130627
  Serious: Yes (Other)
  Sender: FDA-Public Use
  Company Number: PHHY2011US02817

PATIENT
  Age: 12 Year
  Sex: Male
  Weight: 47.6 kg

DRUGS (7)
  1. AFINITOR [Suspect]
     Indication: TUBEROUS SCLEROSIS
     Dosage: 7.5 mg, Daily
     Route: 048
     Dates: start: 20110103
  2. DEPAKOTE [Concomitant]
     Dosage: 1500 mg, daily
  3. ARNIKA [Concomitant]
     Dosage: UNK UKN, daily
  4. MIRALAX [Concomitant]
     Dosage: UNK UKN, UNK
  5. TENEX [Concomitant]
  6. CARNITOR [Concomitant]
  7. AMIKA [Concomitant]

REACTIONS (9)
  - Aggression [Not Recovered/Not Resolved]
  - Paronychia [Unknown]
  - Pain [Unknown]
  - Inflammation [Not Recovered/Not Resolved]
  - Acne [Unknown]
  - Insomnia [Unknown]
  - Abdominal distension [Unknown]
  - Cough [Unknown]
  - Fatigue [Unknown]
